FAERS Safety Report 8889304 (Version 1)
Quarter: 2012Q4

REPORT INFORMATION
  Report Type: 
  Country: US (occurrence: US)
  Receive Date: 20121106
  Receipt Date: 20121106
  Transmission Date: 20130627
  Serious: Yes (Life-Threatening, Other)
  Sender: FDA-Public Use
  Company Number: US-BAYER-2012-115506

PATIENT
  Age: 65 Year
  Sex: Female
  Weight: 59 kg

DRUGS (18)
  1. ALEVE CAPLET/TABLET,MIDOL EXTENDED RELIEF CAPLET [Suspect]
     Dosage: UNK
     Route: 048
     Dates: start: 1998, end: 2008
  2. OXYCONTIN [Concomitant]
  3. MORPHINE [Concomitant]
  4. VICODIN [Concomitant]
  5. WARFARIN [Concomitant]
  6. FOLIC ACID [Concomitant]
  7. HYDROCODONE [Concomitant]
  8. ADVAIR [Concomitant]
  9. REQUIP [Concomitant]
  10. TYLENOL [PARACETAMOL] [Concomitant]
  11. FLUOXETINE [Concomitant]
  12. GABAPENTIN [Concomitant]
  13. PRIMIDONE [Concomitant]
  14. HYOSCYAMINE [Concomitant]
  15. ONDANSETRON [Concomitant]
  16. SEROQUEL [Concomitant]
  17. DIAZEPAM [Concomitant]
  18. OMEPRAZOLE [Concomitant]

REACTIONS (11)
  - Septic shock [None]
  - Asthma [None]
  - Peroneal nerve palsy [None]
  - Restless legs syndrome [None]
  - Cerebrovascular accident [None]
  - Haemorrhage [None]
  - Coma [None]
  - Vomiting [Recovered/Resolved]
  - Constipation [Recovered/Resolved]
  - Nausea [Recovered/Resolved]
  - Incorrect drug administration duration [None]
